FAERS Safety Report 9279613 (Version 3)
Quarter: 2013Q2

REPORT INFORMATION
  Report Type: Spontaneous
  Country: US (occurrence: US)
  Receive Date: 20130509
  Receipt Date: 20130617
  Transmission Date: 20140414
  Serious: No
  Sender: FDA-Public Use
  Company Number: US-009507513-1305USA001029

PATIENT
  Age: 40 Year
  Sex: Male
  Weight: 125.62 kg

DRUGS (4)
  1. PEGINTRON [Suspect]
     Indication: HEPATITIS C
     Dosage: 190 MICROGRAM, QW
     Route: 058
     Dates: start: 20130429, end: 20130430
  2. REBETOL [Suspect]
     Route: 048
  3. TELAPREVIR [Suspect]
  4. IBUPROFEN [Concomitant]
     Indication: PAIN
     Dosage: 200 MG, PRN
     Route: 048

REACTIONS (8)
  - Disorientation [Recovered/Resolved]
  - Tremor [Recovered/Resolved]
  - Heart rate increased [Recovered/Resolved]
  - Incorrect dose administered [Unknown]
  - Insomnia [Recovered/Resolved]
  - Chest pain [Recovered/Resolved]
  - Malaise [Recovered/Resolved]
  - Anxiety [Recovered/Resolved]
